FAERS Safety Report 17282621 (Version 1)
Quarter: 2020Q1

REPORT INFORMATION
  Report Type: Spontaneous
  Country: US (occurrence: US)
  Receive Date: 20191230
  Receipt Date: 20191230
  Transmission Date: 20200409
  Serious: Yes (Death)
  Sender: FDA-Public Use
  Company Number: None

PATIENT
  Age: 62 Year
  Sex: Male
  Weight: 116.1 kg

DRUGS (15)
  1. TRILEPTAL [Concomitant]
     Active Substance: OXCARBAZEPINE
  2. FISH OIL [Concomitant]
     Active Substance: FISH OIL
  3. GARLIC. [Concomitant]
     Active Substance: GARLIC
  4. SYNTHROID [Concomitant]
     Active Substance: LEVOTHYROXINE SODIUM
  5. DECADRON [Concomitant]
     Active Substance: DEXAMETHASONE
  6. VITAMIN C [Concomitant]
     Active Substance: ASCORBIC ACID
  7. FLOMAX [Concomitant]
     Active Substance: TAMSULOSIN HYDROCHLORIDE
  8. PRIOBIOTIC [Concomitant]
  9. KEPPRA [Concomitant]
     Active Substance: LEVETIRACETAM
  10. VITAMIN D [Concomitant]
     Active Substance: VITAMIN D NOS
  11. VITAMIN B COMPLEX [Concomitant]
     Active Substance: CYANOCOBALAMIN\DEXPANTHENOL\NIACINAMIDE\PYRIDOXINE HYDROCHLORIDE\RIBOFLAVIN 5^-PHOSPHATE SODIUM\THIAMINE HYDROCHLORIDE\VITAMIN B COMPLEX
  12. BEVACIZUMAB 343 MG [Suspect]
     Active Substance: BEVACIZUMAB
     Indication: GLIOBLASTOMA
     Dosage: ?          OTHER DOSE:343 MG (3MG/KG);OTHER FREQUENCY:EVERY 2 EKS;?
     Route: 042
     Dates: start: 20190709, end: 20190918
  13. NIVOLUMAB 240MG [Suspect]
     Active Substance: NIVOLUMAB
     Indication: GLIOBLASTOMA
     Dosage: ?          OTHER DOSE:240 MG;OTHER FREQUENCY:EVERY 2 WKS;?
     Route: 042
     Dates: start: 20190709, end: 20190918
  14. BETA CAROLENE [Concomitant]
  15. TURMERIC [Concomitant]
     Active Substance: HERBALS\TURMERIC

REACTIONS (1)
  - Disease progression [None]

NARRATIVE: CASE EVENT DATE: 20191218
